FAERS Safety Report 10034965 (Version 1)
Quarter: 2014Q1

REPORT INFORMATION
  Report Type: Spontaneous
  Country: US (occurrence: None)
  Receive Date: 20140306
  Receipt Date: 20140306
  Transmission Date: 20141002
  Serious: Yes (Hospitalization)
  Sender: FDA-Public Use
  Company Number: 163-21880-13032260

PATIENT
  Age: 80 Year
  Sex: Male

DRUGS (9)
  1. REVLIMID (LENALIDOMIDE) (10 MILLIGRAM, CAPSULES) [Suspect]
     Indication: MYELODYSPLASTIC SYNDROME
     Dosage: 10 MG, 21 IN 21 D, PO
     Route: 048
     Dates: start: 20130107
  2. ALLOPURINOL [Concomitant]
  3. ASPIRIN [Concomitant]
  4. DEXAMETHASONE [Concomitant]
  5. FOLIC ACID [Concomitant]
  6. FUROSEMIDE [Concomitant]
  7. HYDROCODONE/ACETAMINOPHEN [Concomitant]
  8. OMEPRAZOLE [Concomitant]
  9. PROCHLORPERAZINE MALEATE [Concomitant]

REACTIONS (1)
  - Anaemia [None]
